FAERS Safety Report 16839225 (Version 1)
Quarter: 2019Q4

REPORT INFORMATION
  Report Type: Spontaneous
  Country: US (occurrence: US)
  Receive Date: 20190921
  Receipt Date: 20190921
  Transmission Date: 20200122
  Serious: Yes (Other)
  Sender: FDA-Public Use
  Company Number: None

PATIENT
  Age: 62 Year
  Sex: Female

DRUGS (1)
  1. NO7 RESTORE AND RENEW DAY CREAM SPF 15 [Suspect]
     Active Substance: AVOBENZONE\OCTISALATE\OCTOCRYLENE

REACTIONS (5)
  - Application site pruritus [None]
  - Application site pain [None]
  - Application site urticaria [None]
  - Application site swelling [None]
  - Application site burn [None]

NARRATIVE: CASE EVENT DATE: 20190920
